FAERS Safety Report 5274198-X (Version None)
Quarter: 2007Q1

REPORT INFORMATION
  Report Type: 
  Country: None (occurrence: None)
  Receive Date: 20070323
  Receipt Date: 20070315
  Transmission Date: 20070707
  Serious: Yes (Death)
  Sender: FDA-Public Use
  Company Number: CA-ABBOTT-07P-028-0362082-00

PATIENT

DRUGS (3)
  1. VALPROIC ACID [Suspect]
     Indication: CONVULSION
     Route: 065
  2. ASPIRIN [Concomitant]
     Indication: CORONARY ARTERY DISEASE
     Route: 065
  3. ASPIRIN [Concomitant]
     Indication: ANGINA PECTORIS

REACTIONS (1)
  - MYOCARDIAL HAEMORRHAGE [None]
